FAERS Safety Report 6099602-9 (Version None)
Quarter: 2009Q1

REPORT INFORMATION
  Report Type: 
  Country: None (occurrence: None)
  Receive Date: 20090303
  Receipt Date: 20090220
  Transmission Date: 20090719
  Serious: Yes (Hospitalization)
  Sender: FDA-Public Use
  Company Number: FR-SANOFI-SYNTHELABO-A02200900448

PATIENT
  Sex: Male

DRUGS (2)
  1. GEMZAR [Suspect]
     Indication: BILE DUCT CANCER
     Route: 042
     Dates: start: 20081204, end: 20081204
  2. ELOXATIN [Suspect]
     Indication: BILE DUCT CANCER
     Route: 042
     Dates: start: 20081204, end: 20081204

REACTIONS (2)
  - CONDITION AGGRAVATED [None]
  - VASCULITIS NECROTISING [None]
